FAERS Safety Report 21468139 (Version 4)
Quarter: 2022Q4

REPORT INFORMATION
  Report Type: Report from Study
  Country: IT (occurrence: IT)
  Receive Date: 20221017
  Receipt Date: 20221228
  Transmission Date: 20230113
  Serious: Yes (Other)
  Sender: FDA-Public Use
  Company Number: None

PATIENT
  Age: 54 Year
  Sex: Male

DRUGS (6)
  1. REMDESIVIR [Suspect]
     Active Substance: REMDESIVIR
     Indication: COVID-19 pneumonia
     Route: 042
  2. KINERET [Concomitant]
     Active Substance: ANAKINRA
     Route: 058
  3. KINERET [Concomitant]
     Active Substance: ANAKINRA
     Route: 058
  4. PREDNISONE [Concomitant]
     Active Substance: PREDNISONE
     Route: 048
  5. PREDNISONE [Concomitant]
     Active Substance: PREDNISONE
     Route: 048
  6. OXYGEN [Concomitant]
     Active Substance: OXYGEN

REACTIONS (1)
  - Bradycardia [Recovering/Resolving]

NARRATIVE: CASE EVENT DATE: 20220501
